FAERS Safety Report 17098073 (Version 1)
Quarter: 2019Q4

REPORT INFORMATION
  Report Type: Spontaneous
  Country: FR (occurrence: FR)
  Receive Date: 20191202
  Receipt Date: 20191202
  Transmission Date: 20200122
  Serious: Yes (Death, Hospitalization)
  Sender: FDA-Public Use
  Company Number: FR-PFIZER INC-2019513018

PATIENT
  Age: 74 Year
  Sex: Male

DRUGS (13)
  1. CARBOPLATIN. [Suspect]
     Active Substance: CARBOPLATIN
     Indication: SMALL CELL LUNG CANCER METASTATIC
     Dosage: 575 MG, SINGLE
     Route: 041
     Dates: start: 20190928, end: 20190928
  2. ZIEXTENZO [Concomitant]
     Active Substance: PEGFILGRASTIM-BMEZ
     Indication: NEOPLASM MALIGNANT
     Dosage: 1 DF, SINGLE
     Route: 058
     Dates: start: 20190930, end: 20190930
  3. ELIQUIS [Concomitant]
     Active Substance: APIXABAN
     Indication: ARRHYTHMIA
     Dosage: 2 DF, 1X/DAY
     Route: 048
     Dates: start: 20190719, end: 20191006
  4. HUMALOG [Concomitant]
     Active Substance: INSULIN LISPRO
     Indication: DIABETES MELLITUS
     Dosage: ACCORDING TO PROTOCOL
     Route: 058
     Dates: start: 20190928, end: 20191004
  5. DIFFU K [Concomitant]
     Active Substance: POTASSIUM CHLORIDE
     Dosage: 3600 MG, 1X/DAY
     Route: 048
     Dates: start: 20190928, end: 20191004
  6. ETOPOSIDE. [Suspect]
     Active Substance: ETOPOSIDE
     Indication: SMALL CELL LUNG CANCER METASTATIC
     Dosage: 242 MG, 1X/DAY
     Route: 042
     Dates: start: 20190928, end: 20190929
  7. METHYLPREDNISOLONE. [Concomitant]
     Active Substance: METHYLPREDNISOLONE
     Indication: SMALL CELL LUNG CANCER METASTATIC
     Dosage: 40 MG, 1X/DAY
     Route: 042
     Dates: start: 20190928, end: 20190930
  8. OXYCODONE [Concomitant]
     Active Substance: OXYCODONE
     Indication: PAIN
     Dosage: 40 MG, 1X/DAY
     Route: 048
     Dates: start: 20191001
  9. ZYMAD [Concomitant]
     Active Substance: CHOLECALCIFEROL
     Dosage: 1 DF, SINGLE
     Route: 048
     Dates: start: 20190928, end: 20190928
  10. SOTALOL. [Concomitant]
     Active Substance: SOTALOL
     Indication: ARRHYTHMIA
     Dosage: 2 DF, 1X/DAY
     Route: 048
     Dates: start: 20190719, end: 201909
  11. SOLUPRED [PREDNISOLONE METASULFOBENZOATE SODIUM] [Concomitant]
     Active Substance: PREDNISOLONE SODIUM METAZOATE
     Dosage: 40 MG, 1X/DAY
     Route: 048
     Dates: start: 20191001
  12. NOVORAPID [Concomitant]
     Active Substance: INSULIN ASPART
     Indication: TYPE 2 DIABETES MELLITUS
     Dosage: UNK
     Route: 058
     Dates: start: 201909
  13. ABASAGLAR [Concomitant]
     Active Substance: INSULIN GLARGINE
     Dosage: UNK
     Route: 058
     Dates: start: 201909

REACTIONS (4)
  - Neutropenia [Recovered/Resolved]
  - Cardio-respiratory arrest [Fatal]
  - Anaemia [Not Recovered/Not Resolved]
  - Thrombocytopenia [Recovered/Resolved]

NARRATIVE: CASE EVENT DATE: 20191002
